FAERS Safety Report 8788597 (Version 1)
Quarter: 2012Q4

REPORT INFORMATION
  Report Type: 
  Country: US (occurrence: US)
  Receive Date: 20120914
  Receipt Date: 20120914
  Transmission Date: 20130627
  Serious: No
  Sender: FDA-Public Use
  Company Number: US-VERTEX PHARMACEUTICAL INC.-AE-2012-011542

PATIENT
  Age: 61 Year
  Sex: Male
  Weight: 72.73 kg

DRUGS (7)
  1. INCIVEK [Suspect]
     Indication: HEPATITIS C
     Dosage: 750 mg, UNK
     Route: 048
     Dates: start: 20120730
  2. RIBAVIRIN [Concomitant]
     Indication: HEPATITIS C
     Dosage: 600 mg, UNK
     Dates: start: 20120730
  3. PEGASYS [Concomitant]
     Indication: HEPATITIS C
     Dosage: 180 ?g, UNK
     Route: 058
     Dates: start: 20120730
  4. SALSALATE [Concomitant]
     Dosage: 1000 mg, qd
     Route: 048
  5. VERAPAMIL [Concomitant]
  6. ASPIRIN [Concomitant]
     Dosage: 81 mg, qd
  7. MULTIVITAMINS, PLAIN [Concomitant]
     Dosage: 1 qd
     Route: 048

REACTIONS (5)
  - Irritability [Recovered/Resolved]
  - Fatigue [Not Recovered/Not Resolved]
  - Rash pruritic [Recovered/Resolved]
  - Painful defaecation [Not Recovered/Not Resolved]
  - Haematochezia [Not Recovered/Not Resolved]
